FAERS Safety Report 4618112-6 (Version None)
Quarter: 2005Q1

REPORT INFORMATION
  Report Type: 
  Country: None (occurrence: None)
  Receive Date: 20050322
  Receipt Date: 20050311
  Transmission Date: 20050727
  Serious: Yes (Other)
  Sender: FDA-Public Use
  Company Number: 2005044386

PATIENT
  Age: 67 Year
  Sex: Female
  Weight: 83.9154 kg

DRUGS (1)
  1. NEURONTIN [Suspect]
     Indication: HYPOAESTHESIA
     Dosage: 100 MG (100 MG, 1 IN 1 D), ORAL
     Route: 048

REACTIONS (3)
  - DYSPHAGIA [None]
  - THROAT TIGHTNESS [None]
  - VOMITING [None]
